FAERS Safety Report 7373967-X (Version None)
Quarter: 2011Q1

REPORT INFORMATION
  Report Type: 
  Country: None (occurrence: None)
  Receive Date: 20110325
  Receipt Date: 20110323
  Transmission Date: 20110831
  Serious: No
  Sender: FDA-Public Use
  Company Number: US-PFIZER INC-2011065653

PATIENT
  Sex: Male
  Weight: 111 kg

DRUGS (2)
  1. ZOLOFT [Suspect]
     Indication: ANXIETY
     Dosage: 50 MG, 1X/DAY
     Route: 048
     Dates: end: 20110101
  2. ZOLOFT [Suspect]
     Indication: PANIC ATTACK

REACTIONS (1)
  - DRUG INEFFECTIVE [None]
